FAERS Safety Report 5360056-9 (Version None)
Quarter: 2007Q2

REPORT INFORMATION
  Report Type: 
  Country: None (occurrence: None)
  Receive Date: 20070618
  Receipt Date: 20060419
  Transmission Date: 20071010
  Serious: No
  Sender: FDA-Public Use
  Company Number: US-ASTRAZENECA-2006UW06899

PATIENT
  Age: 69 Year
  Sex: Female
  Weight: 66.5 kg

DRUGS (4)
  1. FASLODEX [Suspect]
     Indication: BREAST CANCER
     Dates: start: 20060201
  2. DYAZIDE [Concomitant]
  3. CLONIDINE [Concomitant]
  4. COZAAR [Concomitant]

REACTIONS (1)
  - WEIGHT INCREASED [None]
